FAERS Safety Report 6728229-8 (Version None)
Quarter: 2010Q2

REPORT INFORMATION
  Report Type: 
  Country: None (occurrence: None)
  Receive Date: 20100517
  Receipt Date: 20100512
  Transmission Date: 20101027
  Serious: Yes (Other)
  Sender: FDA-Public Use
  Company Number: US-BRISTOL-MYERS SQUIBB COMPANY-15102197

PATIENT
  Age: 80 Year
  Sex: Female
  Weight: 77 kg

DRUGS (6)
  1. ABILIFY [Suspect]
     Indication: ANXIETY
     Dosage: AT BEDTIME
     Dates: start: 20100430
  2. SYNTHROID [Concomitant]
  3. PRILOSEC [Concomitant]
  4. NADOLOL [Concomitant]
  5. ATIVAN [Concomitant]
  6. ZOLOFT [Concomitant]

REACTIONS (3)
  - FALL [None]
  - FOOT FRACTURE [None]
  - RIB FRACTURE [None]
